FAERS Safety Report 8540373-1 (Version None)
Quarter: 2012Q3

REPORT INFORMATION
  Report Type: 
  Country: None (occurrence: None)
  Receive Date: 20120726
  Receipt Date: 20110719
  Transmission Date: 20120928
  Serious: No
  Sender: FDA-Public Use
  Company Number: US-ASTRAZENECA-2010SE54423

PATIENT
  Age: 61 Year
  Sex: Female
  Weight: 68 kg

DRUGS (3)
  1. SEROQUEL [Suspect]
     Route: 048
  2. PROSOM [Concomitant]
  3. DEPAKOTE [Concomitant]

REACTIONS (4)
  - WALKING AID USER [None]
  - PLANTAR FASCIITIS [None]
  - PAIN IN EXTREMITY [None]
  - ABDOMINAL DISTENSION [None]
